FAERS Safety Report 24745304 (Version 1)
Quarter: 2024Q4

REPORT INFORMATION
  Report Type: Report from Study
  Country: DE (occurrence: DE)
  Receive Date: 20241217
  Receipt Date: 20241217
  Transmission Date: 20250115
  Serious: Yes (Other)
  Sender: JOHNSON AND JOHNSON
  Company Number: DE-JNJFOC-20241242114

PATIENT
  Age: 28 Year
  Sex: Male

DRUGS (2)
  1. SPRAVATO [Suspect]
     Active Substance: ESKETAMINE
     Indication: Depression
     Dosage: 16-APR-2024, 23-APR-2024, 30-APR-2024, 07-MAY-2024, 21-MAY-2024, 28-MAY-2024, 04-JUN-2024,12-JUN-202
     Route: 045
     Dates: start: 20240411, end: 20241106
  2. SPRAVATO [Suspect]
     Active Substance: ESKETAMINE
     Dosage: ON 18-MAR-2024, 21-MAR-2024, 25-MAR-2024, 28-MAR-202402-APR-2024, 04-APR-2024
     Route: 045
     Dates: start: 20240313, end: 20240408

REACTIONS (1)
  - Pneumonia [Recovering/Resolving]

NARRATIVE: CASE EVENT DATE: 20241106
